FAERS Safety Report 7893028-0 (Version None)
Quarter: 2011Q4

REPORT INFORMATION
  Report Type: 
  Country: None (occurrence: None)
  Receive Date: 20111104
  Receipt Date: 20111102
  Transmission Date: 20120403
  Serious: Yes (Other)
  Sender: FDA-Public Use
  Company Number: US-PFIZER INC-2011238881

PATIENT
  Sex: Female
  Weight: 54.422 kg

DRUGS (10)
  1. ACETAMINOPHEN [Suspect]
     Dosage: UNK
  2. BENADRYL [Concomitant]
     Dosage: 1 TABLET DAILY
     Route: 048
  3. LEVOXYL [Suspect]
     Dosage: UNK
  4. PROVENTIL GENTLEHALER [Concomitant]
     Indication: WHEEZING
     Dosage: INHALE 2 PUFFS INTO THE LUNGS EVERY 6 HOURS AS NEEDED
  5. GABAPENTIN [Suspect]
     Dosage: UNK
  6. VENTOLIN [Concomitant]
     Indication: WHEEZING
     Dosage: INHALE 2 PUFFS INTO THE LUNGS EVERY 6 HOURS AS NEEDED
  7. LIPITOR [Suspect]
     Indication: BLOOD CHOLESTEROL INCREASED
     Dosage: 20 MG, 1X/DAY
     Route: 048
     Dates: start: 20110531
  8. TYLENOL PO [Concomitant]
     Dosage: 6 TABLETS DAILY
     Route: 048
  9. GABAPENTIN [Suspect]
     Indication: PAIN
     Dosage: 600 MG, UNK
  10. ZOCOR [Concomitant]
     Dosage: 20 MG, 1X/DAY
     Route: 048

REACTIONS (8)
  - PHARYNGEAL OEDEMA [None]
  - DRUG INEFFECTIVE [None]
  - RASH [None]
  - ERYTHEMA [None]
  - PAIN [None]
  - PRURITUS [None]
  - DRUG HYPERSENSITIVITY [None]
  - URTICARIA [None]
